FAERS Safety Report 23627165 (Version 1)
Quarter: 2024Q1

REPORT INFORMATION
  Report Type: Spontaneous
  Country: US (occurrence: None)
  Receive Date: 20240312
  Receipt Date: 20240312
  Transmission Date: 20240410
  Serious: Yes (Death, Life-Threatening)
  Sender: FDA-Public Use
  Company Number: None

PATIENT
  Age: 48 Year
  Sex: Female
  Weight: 87.3 kg

DRUGS (5)
  1. OZEMPIC [Suspect]
     Active Substance: SEMAGLUTIDE
     Indication: Diabetes mellitus
     Dosage: 1 MG WEEKLY SUBCUTANEOUS
     Route: 058
     Dates: start: 20230621, end: 20231114
  2. METFORMIN [Suspect]
     Active Substance: METFORMIN HYDROCHLORIDE
     Dates: start: 20230718, end: 20231228
  3. LEVOTHYROXINE [Concomitant]
     Active Substance: LEVOTHYROXINE\LEVOTHYROXINE SODIUM
     Dates: end: 20231228
  4. FARXIGA [Concomitant]
     Active Substance: DAPAGLIFLOZIN PROPANEDIOL
     Dates: start: 20230718, end: 20231228
  5. WEGOVY [Suspect]
     Active Substance: SEMAGLUTIDE

REACTIONS (8)
  - Therapy change [None]
  - Thyroid mass [None]
  - Product availability issue [None]
  - Therapy change [None]
  - Hyperthyroidism [None]
  - Vocal cord paralysis [None]
  - Goitre [None]
  - Thyroid cancer [None]

NARRATIVE: CASE EVENT DATE: 20231228
